FAERS Safety Report 13615002 (Version 1)
Quarter: 2017Q2

REPORT INFORMATION
  Report Type: Spontaneous
  Country: TR (occurrence: TR)
  Receive Date: 20170606
  Receipt Date: 20170606
  Transmission Date: 20170830
  Serious: Yes (Death, Life-Threatening, Hospitalization, Other)
  Sender: FDA-Public Use
  Company Number: TR-SUN PHARMACEUTICAL INDUSTRIES LTD-2017RR-142093

PATIENT
  Age: 18 Year
  Sex: Female
  Weight: 56 kg

DRUGS (1)
  1. AMLODIPINE [Suspect]
     Active Substance: AMLODIPINE BESYLATE
     Indication: SUICIDE ATTEMPT
     Dosage: 120 MG, TOTAL
     Route: 048

REACTIONS (9)
  - Metabolic acidosis [Fatal]
  - Loss of consciousness [Unknown]
  - Cardiac arrest [Fatal]
  - Toxicity to various agents [Fatal]
  - Hypotension [Not Recovered/Not Resolved]
  - Intentional overdose [Fatal]
  - Bradycardia [Unknown]
  - Sinus tachycardia [Unknown]
  - Pulmonary oedema [Fatal]
